FAERS Safety Report 4348383-5 (Version None)
Quarter: 2004Q1

REPORT INFORMATION
  Report Type: 
  Country: None (occurrence: None)
  Receive Date: 20040325
  Receipt Date: 20040213
  Transmission Date: 20041129
  Serious: No
  Sender: FDA-Public Use
  Company Number: USA040259351

PATIENT
  Age: 80 Year
  Sex: Male
  Weight: 84 kg

DRUGS (13)
  1. FORTEO [Suspect]
     Indication: OSTEOPOROSIS
     Dosage: 20 UG/1 DAY
     Dates: start: 20040210
  2. ASPIRIN [Concomitant]
  3. HUMIBID LA (GUAIFENESIN) [Concomitant]
  4. LESCOL [Concomitant]
  5. COMBIVENT [Concomitant]
  6. TYLENOL [Concomitant]
  7. FLORINEF [Concomitant]
  8. NORVASC [Concomitant]
  9. CELEXA (CITALOPROAM HYDROBROMIDE) [Concomitant]
  10. LOPRESSOR [Concomitant]
  11. PREVACID [Concomitant]
  12. IMDUR [Concomitant]
  13. PREDNISONE [Concomitant]

REACTIONS (1)
  - INJECTION SITE ERYTHEMA [None]
